FAERS Safety Report 11788874 (Version 1)
Quarter: 2015Q4

REPORT INFORMATION
  Report Type: Spontaneous
  Country: US (occurrence: None)
  Receive Date: 20151130
  Receipt Date: 20151130
  Transmission Date: 20160305
  Serious: Yes (Life-Threatening, Hospitalization, Disabling)
  Sender: FDA-Public Use
  Company Number: None

PATIENT
  Age: 66 Year
  Sex: Female
  Weight: 58.06 kg

DRUGS (1)
  1. IFOSFAMIDE (IFOSFAMIDE) [Suspect]
     Active Substance: IFOSFAMIDE
     Indication: NEOPLASM MALIGNANT
     Dosage: PUMP, INTO A VEIN
     Route: 042
     Dates: start: 20151119, end: 20151120

REACTIONS (9)
  - Infection [None]
  - Pain [None]
  - Delusion [None]
  - Toxicity to various agents [None]
  - White blood cell count decreased [None]
  - Incoherent [None]
  - Cardiac disorder [None]
  - Unresponsive to stimuli [None]
  - Seizure [None]

NARRATIVE: CASE EVENT DATE: 20151120
